FAERS Safety Report 9845532 (Version 2)
Quarter: 2015Q2

REPORT INFORMATION
  Report Type: Spontaneous
  Country: US (occurrence: None)
  Receive Date: 20140123
  Receipt Date: 20150612
  Transmission Date: 20150821
  Serious: Yes (Hospitalization)
  Sender: FDA-Public Use
  Company Number: 1713747-2014-99903

PATIENT
  Age: 70 Year
  Sex: Male

DRUGS (19)
  1. HYDROCORTISONE. [Concomitant]
     Active Substance: HYDROCORTISONE
  2. LUCTULOSE [Concomitant]
  3. MULTIVITAMIN [Concomitant]
     Active Substance: VITAMINS
  4. LIBERTY CYCLER SET [Concomitant]
     Active Substance: DEVICE
  5. ALLOPURINOL. [Concomitant]
     Active Substance: ALLOPURINOL
  6. PANTOPRAZOLE [Concomitant]
     Active Substance: PANTOPRAZOLE SODIUM
  7. FUROEMIDE [Concomitant]
  8. LEVOTHYROXINE [Concomitant]
     Active Substance: LEVOTHYROXINE
  9. ALBUTEROL. [Concomitant]
     Active Substance: ALBUTEROL
  10. LIPITOR [Concomitant]
     Active Substance: ATORVASTATIN CALCIUM
  11. CALCITROL [Concomitant]
     Active Substance: CALCITRIOL
  12. TERAZOSIN [Concomitant]
     Active Substance: TERAZOSIN\TERAZOSIN HYDROCHLORIDE
  13. PLAVIX [Concomitant]
     Active Substance: CLOPIDOGREL BISULFATE
  14. LIBERTY CYCLER [Concomitant]
     Active Substance: DEVICE
  15. METOPROLOL [Concomitant]
     Active Substance: METOPROLOL
  16. RENVELA INSULIN OR LANTUS [Concomitant]
  17. TRICOR [Concomitant]
     Active Substance: FENOFIBRATE
  18. DELFLEX [Suspect]
     Active Substance: CALCIUM CHLORIDE\DEXTROSE MONOHYDRATE\MAGNESIUM CHLORIDE\SODIUM CHLORIDE\SODIUM LACTATE
     Indication: CHRONIC KIDNEY DISEASE
     Dosage: PERITONEAL DIALYSIS
     Dates: start: 20131121
  19. ASPIRING [Concomitant]
     Active Substance: ASPIRIN

REACTIONS (2)
  - Encephalopathy [None]
  - Acute myocardial infarction [None]

NARRATIVE: CASE EVENT DATE: 20131121
